FAERS Safety Report 13338263 (Version 1)
Quarter: 2017Q1

REPORT INFORMATION
  Report Type: Other
  Country: US (occurrence: US)
  Receive Date: 20170315
  Receipt Date: 20170315
  Transmission Date: 20170428
  Serious: Yes (Hospitalization, Other)
  Sender: FDA-Public Use
  Company Number: US-SHIRE-US201700605

PATIENT
  Sex: Female
  Weight: 44.99 kg

DRUGS (1)
  1. GATTEX [Suspect]
     Active Substance: TEDUGLUTIDE\WATER
     Indication: SHORT-BOWEL SYNDROME
     Dosage: 0.225 ML,(5MG/ML STRENGTH) UNKNOWN
     Route: 058
     Dates: start: 201608

REACTIONS (4)
  - Dehydration [Unknown]
  - Drug dose omission [Recovered/Resolved]
  - Acute kidney injury [Unknown]
  - Abdominal pain [Recovering/Resolving]
